FAERS Safety Report 8618405 (Version 2)
Quarter: 2014Q1

REPORT INFORMATION
  Report Type: Spontaneous
  Country: US (occurrence: US)
  Receive Date: 20120617
  Receipt Date: 20140224
  Transmission Date: 20141002
  Serious: Yes (Other)
  Sender: FDA-Public Use
  Company Number: US-AMGEN-USASP2012036565

PATIENT
  Age: 72 Year
  Sex: Male

DRUGS (2)
  1. ENBREL [Suspect]
     Indication: RHEUMATOID ARTHRITIS
     Dosage: 25 MG, 2 TIMES/WK
     Route: 065
     Dates: start: 20060501, end: 2008
  2. PREDNISONE [Concomitant]
     Dosage: UNK

REACTIONS (17)
  - Depression [Not Recovered/Not Resolved]
  - Myocardial infarction [Recovered/Resolved]
  - Dehydration [Recovered/Resolved]
  - Constipation [Not Recovered/Not Resolved]
  - Nightmare [Recovered/Resolved]
  - Insomnia [Recovered/Resolved]
  - Slow response to stimuli [Not Recovered/Not Resolved]
  - Pain [Recovered/Resolved]
  - Bedridden [Recovered/Resolved]
  - Atrioventricular block [Recovered/Resolved]
  - Gait disturbance [Not Recovered/Not Resolved]
  - Pain in extremity [Not Recovered/Not Resolved]
  - Back pain [Not Recovered/Not Resolved]
  - Muscular weakness [Not Recovered/Not Resolved]
  - Impaired work ability [Not Recovered/Not Resolved]
  - Nasopharyngitis [Recovered/Resolved]
  - Influenza [Recovered/Resolved]
